FAERS Safety Report 7210470-1 (Version None)
Quarter: 2010Q4

REPORT INFORMATION
  Report Type: 
  Country: None (occurrence: None)
  Receive Date: 20101220
  Receipt Date: 20101208
  Transmission Date: 20110411
  Serious: Yes (Death, Hospitalization)
  Sender: FDA-Public Use
  Company Number: 2010PROUSA00093

PATIENT
  Age: 74 Year
  Sex: Male

DRUGS (6)
  1. PROVENGE [Suspect]
     Indication: PROSTATE CANCER METASTATIC
     Dosage: 250 ML, SINGLE, INTRAVENOUS, 250 ML, SINGLE, INTRAVENOUS
     Route: 042
     Dates: start: 20101014, end: 20101014
  2. PROVENGE [Suspect]
     Indication: PROSTATE CANCER METASTATIC
     Dosage: 250 ML, SINGLE, INTRAVENOUS, 250 ML, SINGLE, INTRAVENOUS
     Route: 042
     Dates: start: 20101115, end: 20101115
  3. PROVENGE [Suspect]
  4. LUPRON [Concomitant]
  5. ZOMETA [Concomitant]
  6. MEGACE [Concomitant]

REACTIONS (10)
  - BACTERIAL INFECTION [None]
  - BLOOD CREATINE PHOSPHOKINASE INCREASED [None]
  - CULTURE URINE POSITIVE [None]
  - HAEMATURIA [None]
  - MALAISE [None]
  - METASTASES TO LIVER [None]
  - NAUSEA [None]
  - PLATELET COUNT DECREASED [None]
  - PROSTATE CANCER METASTATIC [None]
  - RENAL FAILURE [None]
